FAERS Safety Report 17807358 (Version 1)
Quarter: 2020Q2

REPORT INFORMATION
  Report Type: Spontaneous
  Country: PL (occurrence: PL)
  Receive Date: 20200520
  Receipt Date: 20200520
  Transmission Date: 20200714
  Serious: Yes (Hospitalization)
  Sender: FDA-Public Use
  Company Number: NVSC2020PL136084

PATIENT
  Age: 10 Year
  Sex: Male
  Weight: 65 kg

DRUGS (2)
  1. ACIX 250 [Suspect]
     Active Substance: ACYCLOVIR
     Dosage: 800 MG, Q12H
     Route: 042
     Dates: start: 20190310, end: 20190314
  2. ACIX 250 [Suspect]
     Active Substance: ACYCLOVIR
     Indication: MENINGOENCEPHALITIS HERPETIC
     Dosage: 800 MG, Q8H
     Route: 042
     Dates: start: 20190304, end: 20190309

REACTIONS (4)
  - Leukocyturia [Recovering/Resolving]
  - Haematuria [Recovering/Resolving]
  - Blood creatinine increased [Recovering/Resolving]
  - Acute kidney injury [Recovering/Resolving]

NARRATIVE: CASE EVENT DATE: 20190309
